FAERS Safety Report 6018006-8 (Version None)
Quarter: 2008Q4

REPORT INFORMATION
  Report Type: 
  Country: None (occurrence: None)
  Receive Date: 20081223
  Receipt Date: 20081210
  Transmission Date: 20090506
  Serious: Yes (Hospitalization)
  Sender: FDA-Public Use
  Company Number: B0549839A

PATIENT
  Age: 20 Year
  Sex: Female

DRUGS (4)
  1. AUGMENTIN '125' [Suspect]
     Route: 048
     Dates: end: 20080901
  2. IMUREL [Suspect]
     Indication: AUTOIMMUNE HEPATITIS
     Dosage: 25MG PER DAY
     Route: 048
     Dates: end: 20080827
  3. DELURSAN [Suspect]
     Indication: CHOLESTASIS
     Dosage: 250MG TWICE PER DAY
     Route: 048
     Dates: end: 20080815
  4. NEORAL [Suspect]
     Indication: AUTOIMMUNE HEPATITIS
     Dosage: 25MG TWICE PER DAY
     Route: 048
     Dates: end: 20080827

REACTIONS (12)
  - ABNORMAL CLOTTING FACTOR [None]
  - ANTINUCLEAR ANTIBODY POSITIVE [None]
  - GAMMA-GLUTAMYLTRANSFERASE INCREASED [None]
  - INFLAMMATION [None]
  - JAUNDICE [None]
  - LEUKOPENIA [None]
  - NORMOCHROMIC NORMOCYTIC ANAEMIA [None]
  - PROTHROMBIN LEVEL DECREASED [None]
  - PRURITUS [None]
  - PURPURA [None]
  - SMOOTH MUSCLE ANTIBODY POSITIVE [None]
  - TRANSAMINASES INCREASED [None]
